FAERS Safety Report 7929641-1 (Version None)
Quarter: 2011Q4

REPORT INFORMATION
  Report Type: 
  Country: None (occurrence: None)
  Receive Date: 20111116
  Receipt Date: 20111104
  Transmission Date: 20120403
  Serious: Yes (Hospitalization)
  Sender: FDA-Public Use
  Company Number: JPI-P-018096

PATIENT
  Age: 34 Year
  Sex: Female
  Weight: 97.977 kg

DRUGS (9)
  1. METOPROLOL TARTRATE [Concomitant]
  2. METRONIDAZOLE [Suspect]
     Indication: COLITIS ISCHAEMIC
     Dosage: , ORAL
     Route: 048
     Dates: start: 20101101, end: 20101101
  3. METHYLPHENIDATE HCL [Concomitant]
  4. ETHINYL ESTRADIOL AND NORGESTIMATE [Concomitant]
  5. LOSARTAN POTASSIUM [Suspect]
     Indication: DRUG DISPENSING ERROR
     Dosage: , ORAL
     Route: 048
     Dates: start: 20101001, end: 20101001
  6. LOSARTAN POTASSIUM [Suspect]
     Indication: HYPERTENSION
     Dosage: , ORAL
     Route: 048
     Dates: start: 20101001, end: 20101001
  7. XYREM [Suspect]
     Indication: CATAPLEXY
     Dosage: , ORAL   9 GM (4.5 GM, 2 IN 1 D), ORAL
     Route: 048
     Dates: start: 20040101
  8. PREDNISONE TAB [Suspect]
     Indication: ANAPHYLACTIC REACTION
     Dosage: (ORAL OR INJECTABLE AT HIGH DOSES)
     Route: 048
     Dates: start: 20090101, end: 20100101
  9. FUROSEMIDE [Concomitant]

REACTIONS (6)
  - COLITIS ISCHAEMIC [None]
  - ANAPHYLACTIC REACTION [None]
  - WEIGHT INCREASED [None]
  - AUTONOMIC NERVOUS SYSTEM IMBALANCE [None]
  - WRONG DRUG ADMINISTERED [None]
  - DRUG DISPENSING ERROR [None]
